FAERS Safety Report 9381960 (Version 2)
Quarter: 2013Q3

REPORT INFORMATION
  Report Type: Spontaneous
  Country: US (occurrence: US)
  Receive Date: 20130703
  Receipt Date: 20130916
  Transmission Date: 20140515
  Serious: Yes (Death, Hospitalization, Other)
  Sender: FDA-Public Use
  Company Number: US-INCYTE CORPORATION-2013IN001420

PATIENT
  Age: 85 Year
  Sex: Male
  Weight: 70.75 kg

DRUGS (17)
  1. JAKAFI [Suspect]
     Indication: MYELOFIBROSIS
     Dosage: 15 MG, BID
     Route: 048
     Dates: start: 20130415, end: 20130531
  2. ALLOPURINOL [Concomitant]
     Dosage: 150 MG, QD
  3. ARANESP [Concomitant]
     Dosage: 0.5 MG, QD
  4. B12 [Concomitant]
     Dosage: 1000 MCG, QD
     Route: 048
  5. AVODART [Concomitant]
  6. ASA [Concomitant]
     Dosage: 81 MG, UNK
  7. COENZYME Q10 [Concomitant]
  8. FISH OIL [Concomitant]
     Dosage: 3 TIMES A DAY
  9. BENEMID [Concomitant]
     Dosage: 1 MG, QD
  10. HYTRIN [Concomitant]
     Dosage: 5 MG, QD
  11. COLACE [Concomitant]
     Dosage: PRN
  12. VITAMIN D [Concomitant]
     Dosage: 50,000 UNITS ,WEEKLY
  13. JANUVIA [Concomitant]
     Dosage: 50 MG, QD
  14. LASIX [Concomitant]
     Dosage: 40 MG, QD
  15. METOPROLOL [Concomitant]
     Dosage: 50 MG, BID
  16. SIMVASTATIN [Concomitant]
     Dosage: 10 MG, QD
  17. PREDNISONE [Concomitant]
     Dosage: 20 MG, QD

REACTIONS (7)
  - Myelodysplastic syndrome transformation [Fatal]
  - Renal failure acute [Fatal]
  - Respiratory failure [Fatal]
  - Gouty arthritis [Unknown]
  - Thrombocytopenia [Recovering/Resolving]
  - Quality of life decreased [Unknown]
  - Hyporesponsive to stimuli [Unknown]
